FAERS Safety Report 8338591-0 (Version None)
Quarter: 2012Q2

REPORT INFORMATION
  Report Type: 
  Country: None (occurrence: None)
  Receive Date: 20120504
  Receipt Date: 20120424
  Transmission Date: 20120825
  Serious: Yes (Other)
  Sender: FDA-Public Use
  Company Number: NL-TEVA-336207ISR

PATIENT
  Age: 49 Year
  Sex: Male

DRUGS (1)
  1. ACTIQ 400MCG COMPRESSED LOZENGE WITH OROMUCOSAL APPLICATOR [Suspect]
     Route: 002

REACTIONS (2)
  - OFF LABEL USE [None]
  - DRUG DEPENDENCE [None]
